FAERS Safety Report 8213087-5 (Version None)
Quarter: 2012Q2

REPORT INFORMATION
  Report Type: 
  Country: None (occurrence: None)
  Receive Date: 20120228
  Receipt Date: 20110720
  Transmission Date: 20120825
  Serious: Yes (Hospitalization, Other)
  Sender: FDA-Public Use
  Company Number: RB-30619-2011

PATIENT
  Age: 7 Month
  Sex: Female

DRUGS (1)
  1. SUBOXONE [Suspect]
     Indication: ACCIDENTAL EXPOSURE
     Dosage: (^PART OF 8 MG TABLET^ BUCCAL)
     Route: 002
     Dates: start: 20110715, end: 20110715

REACTIONS (4)
  - ACCIDENTAL EXPOSURE [None]
  - SOMNOLENCE [None]
  - EMOTIONAL DISORDER [None]
  - VOMITING [None]
